FAERS Safety Report 22130099 (Version 8)
Quarter: 2023Q2

REPORT INFORMATION
  Report Type: Report from Study
  Country: CN (occurrence: CN)
  Receive Date: 20230323
  Receipt Date: 20230511
  Transmission Date: 20230721
  Serious: Yes (Hospitalization)
  Sender: FDA-Public Use
  Company Number: CN-002147023-NVSC2023CN063115

PATIENT
  Age: 59 Year
  Sex: Female
  Weight: 68.5 kg

DRUGS (13)
  1. DABRAFENIB [Suspect]
     Active Substance: DABRAFENIB
     Indication: Thyroid cancer
     Dosage: UNK
     Route: 048
     Dates: start: 20220907, end: 20230312
  2. TRAMETINIB [Suspect]
     Active Substance: TRAMETINIB
     Indication: Thyroid cancer
     Dosage: UNK
     Route: 048
     Dates: start: 20220907, end: 20230312
  3. CALCIUM CARBONATE [Concomitant]
     Active Substance: CALCIUM CARBONATE
     Indication: General physical condition
     Dosage: UNK
     Route: 065
     Dates: start: 2012
  4. VITAMIN B4 [Concomitant]
     Indication: General physical condition
     Dosage: UNK
     Route: 065
     Dates: start: 2021
  5. IBUPROFEN [Concomitant]
     Active Substance: IBUPROFEN
     Indication: Intercostal neuralgia
     Dosage: SUSTAINED-RELEASE
     Route: 065
     Dates: start: 20230120, end: 20230129
  6. IBUPROFEN [Concomitant]
     Active Substance: IBUPROFEN
     Dosage: SUSTAINED-RELEASE
     Route: 065
     Dates: start: 20230301, end: 20230306
  7. ACETAMINOPHEN\TRAMADOL HYDROCHLORIDE [Concomitant]
     Active Substance: ACETAMINOPHEN\TRAMADOL HYDROCHLORIDE
     Indication: Intercostal neuralgia
     Dosage: UNK
     Route: 065
     Dates: start: 20230208, end: 20230208
  8. ACETAMINOPHEN\TRAMADOL HYDROCHLORIDE [Concomitant]
     Active Substance: ACETAMINOPHEN\TRAMADOL HYDROCHLORIDE
     Dosage: UNK
     Route: 065
     Dates: start: 20230307, end: 20230314
  9. PREGABALIN [Concomitant]
     Active Substance: PREGABALIN
     Indication: Intercostal neuralgia
     Dosage: UNK
     Route: 065
     Dates: start: 20230301, end: 20230314
  10. VITAMIN E [Concomitant]
     Active Substance: .ALPHA.-TOCOPHEROL
     Indication: General physical condition
     Dosage: UNK
     Route: 065
     Dates: start: 2021
  11. DICLOFENAC SODIUM [Concomitant]
     Active Substance: DICLOFENAC SODIUM
     Indication: Intercostal neuralgia
     Dosage: SUSTAINED RELEASE TABLETS
     Route: 065
     Dates: start: 20230130, end: 20230228
  12. METHYLCOBALAMIN [Concomitant]
     Active Substance: METHYLCOBALAMIN
     Indication: Intercostal neuralgia
     Dosage: UNK
     Route: 065
     Dates: start: 20230208, end: 20230314
  13. LEUCOGEN [Concomitant]
     Active Substance: LEUCOGEN
     Indication: White blood cell count decreased
     Dosage: UNK
     Route: 065
     Dates: start: 20230228, end: 20230313

REACTIONS (1)
  - Intercostal neuralgia [Recovering/Resolving]

NARRATIVE: CASE EVENT DATE: 20230311
